FAERS Safety Report 16169404 (Version 2)
Quarter: 2019Q2

REPORT INFORMATION
  Report Type: Spontaneous
  Country: CA (occurrence: CA)
  Receive Date: 20190408
  Receipt Date: 20190418
  Transmission Date: 20190711
  Serious: Yes (Other)
  Sender: FDA-Public Use
  Company Number: CA-PFIZER INC-2019146745

PATIENT
  Sex: Female
  Weight: 52 kg

DRUGS (13)
  1. CYMBALTA [Suspect]
     Active Substance: DULOXETINE HYDROCHLORIDE
     Dosage: 30 MILLIGRAM, QD
     Route: 065
  2. MICARDIS [Suspect]
     Active Substance: TELMISARTAN
     Dosage: 80 MILLIGRAM, QD (EVERY 24 HOURS)
     Route: 065
  3. METFORMIN [Suspect]
     Active Substance: METFORMIN HYDROCHLORIDE
     Dosage: 1000 MILLIGRAM, BID
     Route: 065
  4. FOLINIC ACID [Suspect]
     Active Substance: LEUCOVORIN
     Dosage: 10 MILLIGRAM, 1/WEEK
     Route: 065
  5. PROLIA [Concomitant]
     Active Substance: DENOSUMAB
     Dosage: UNK
  6. JANUVIA [Suspect]
     Active Substance: SITAGLIPTIN PHOSPHATE
     Dosage: 100 MILLIGRAM, QD
     Route: 065
  7. ROSUVASTATIN CALCIUM. [Suspect]
     Active Substance: ROSUVASTATIN CALCIUM
     Dosage: 5 MILLIGRAM, QD (EVERY 24 HOURS)
     Route: 065
  8. PANTOPRAZOLE [Suspect]
     Active Substance: PANTOPRAZOLE
     Dosage: 40 MILLIGRAM, QD
     Route: 048
  9. DIAMICRON [Suspect]
     Active Substance: GLICLAZIDE
     Dosage: 30 MILLIGRAM, QD
     Route: 065
  10. TYLENOL [Suspect]
     Active Substance: ACETAMINOPHEN
     Dosage: UNK, QD (ONE DOSAGE FORM ONE EVERY ONE DAY)
     Route: 065
  11. ACETAMINOPHEN. [Suspect]
     Active Substance: ACETAMINOPHEN
     Dosage: UNK, QD (ONE EVERY ONE DAY)
     Route: 065
  12. BACLOFEN. [Suspect]
     Active Substance: BACLOFEN
     Dosage: UNK
     Route: 065
  13. LEFLUNOMIDE. [Suspect]
     Active Substance: LEFLUNOMIDE
     Dosage: UNK
     Route: 065

REACTIONS (21)
  - Joint noise [Recovering/Resolving]
  - Osteoporosis [Recovering/Resolving]
  - Rotator cuff syndrome [Recovering/Resolving]
  - Tendonitis [Recovering/Resolving]
  - Blood pressure systolic increased [Recovering/Resolving]
  - Muscle atrophy [Recovering/Resolving]
  - Myalgia [Recovering/Resolving]
  - Bursitis [Recovering/Resolving]
  - Pain in extremity [Recovering/Resolving]
  - Drug ineffective [Unknown]
  - Dizziness [Recovering/Resolving]
  - Joint swelling [Recovering/Resolving]
  - Nausea [Recovering/Resolving]
  - Scoliosis [Recovering/Resolving]
  - Haemoglobin increased [Recovering/Resolving]
  - Hypokinesia [Recovering/Resolving]
  - Musculoskeletal pain [Recovering/Resolving]
  - Osteoarthritis [Recovering/Resolving]
  - Hand deformity [Recovering/Resolving]
  - Pain [Recovering/Resolving]
  - Rheumatoid arthritis [Recovering/Resolving]
